FAERS Safety Report 7922531-X (Version None)
Quarter: 2011Q4

REPORT INFORMATION
  Report Type: 
  Country: None (occurrence: None)
  Receive Date: 20111117
  Receipt Date: 20110119
  Transmission Date: 20120403
  Serious: Yes (Hospitalization, Other)
  Sender: FDA-Public Use
  Company Number: US-AMGEN-USASP2011003412

PATIENT
  Age: 53 Year
  Sex: Female

DRUGS (1)
  1. ENBREL [Suspect]
     Indication: RHEUMATOID ARTHRITIS
     Dates: start: 20100101, end: 20110102

REACTIONS (4)
  - VIRAL MYOCARDITIS [None]
  - CARDIAC FAILURE CONGESTIVE [None]
  - NASOPHARYNGITIS [None]
  - SINUS DISORDER [None]
